FAERS Safety Report 4674223-0 (Version None)
Quarter: 2005Q2

REPORT INFORMATION
  Report Type: 
  Country: None (occurrence: None)
  Receive Date: 20050526
  Receipt Date: 20030721
  Transmission Date: 20051028
  Serious: Yes (Death)
  Sender: FDA-Public Use
  Company Number: US-ABBOTT-03P-163-0225965-00

PATIENT
  Age: 41 Year
  Sex: Male
  Weight: 90.8 kg

DRUGS (1)
  1. HYDROCODONE BITARTRATE [Suspect]
     Dates: end: 20020101

REACTIONS (1)
  - DRUG LEVEL INCREASED [None]
